FAERS Safety Report 6372247-9 (Version None)
Quarter: 2009Q3

REPORT INFORMATION
  Report Type: 
  Country: None (occurrence: None)
  Receive Date: 20090924
  Receipt Date: 20090914
  Transmission Date: 20100115
  Serious: Yes (Hospitalization)
  Sender: FDA-Public Use
  Company Number: US-BIOGENIDEC-2009BI017766

PATIENT
  Age: 66 Year
  Sex: Female

DRUGS (1)
  1. AVONEX [Suspect]
     Indication: MULTIPLE SCLEROSIS
     Route: 030
     Dates: start: 20090505

REACTIONS (8)
  - FUNGAL INFECTION [None]
  - GASTROINTESTINAL DISORDER [None]
  - HYPERSENSITIVITY [None]
  - INTESTINAL PROLAPSE [None]
  - PAIN [None]
  - PLEURAL FIBROSIS [None]
  - RHINORRHOEA [None]
  - SMALL INTESTINAL OBSTRUCTION [None]
